FAERS Safety Report 20582721 (Version 1)
Quarter: 2022Q1

REPORT INFORMATION
  Report Type: Spontaneous
  Country: BE (occurrence: BE)
  Receive Date: 20220311
  Receipt Date: 20220311
  Transmission Date: 20220424
  Serious: Yes (Other)
  Sender: FDA-Public Use
  Company Number: None

PATIENT
  Age: 63 Year
  Sex: Female
  Weight: 66 kg

DRUGS (1)
  1. AROMASIN [Suspect]
     Active Substance: EXEMESTANE
     Indication: Breast cancer
     Dosage: 25 MG (1 TABLET), 1X/DAY
     Route: 048
     Dates: start: 20210925, end: 20211127

REACTIONS (12)
  - Blood bilirubin increased [Unknown]
  - Arthralgia [Recovered/Resolved]
  - Aspartate aminotransferase increased [Unknown]
  - Alanine aminotransferase increased [Unknown]
  - Gamma-glutamyltransferase increased [Unknown]
  - Chromaturia [Recovering/Resolving]
  - Allergic reaction to excipient [Recovered/Resolved]
  - Bilirubin conjugated increased [Unknown]
  - Pruritus [Recovered/Resolved]
  - Blood alkaline phosphatase increased [Unknown]
  - Hepatitis [Unknown]
  - Blood lactate dehydrogenase increased [Unknown]

NARRATIVE: CASE EVENT DATE: 20211101
